FAERS Safety Report 5176432-3 (Version None)
Quarter: 2006Q4

REPORT INFORMATION
  Report Type: 
  Country: None (occurrence: None)
  Receive Date: 20061215
  Receipt Date: 20061205
  Transmission Date: 20070319
  Serious: Yes (Other)
  Sender: FDA-Public Use
  Company Number: GB-ROCHE-474386

PATIENT
  Age: 74 Year
  Sex: Female
  Weight: 117.5 kg

DRUGS (5)
  1. XENICAL [Suspect]
     Indication: OBESITY
     Route: 048
     Dates: start: 20061123, end: 20061203
  2. METFORMIN HCL [Concomitant]
     Route: 048
  3. OMEPRAZOLE [Concomitant]
     Route: 048
  4. AMLODIPINE [Concomitant]
     Route: 048
  5. RAMIPRIL [Concomitant]
     Route: 065

REACTIONS (1)
  - PROCEDURAL PAIN [None]
